FAERS Safety Report 6872209-9 (Version None)
Quarter: 2010Q3

REPORT INFORMATION
  Report Type: 
  Country: None (occurrence: None)
  Receive Date: 20100723
  Receipt Date: 20100715
  Transmission Date: 20110219
  Serious: Yes (Hospitalization)
  Sender: FDA-Public Use
  Company Number: US-AMGEN-KDL424897

PATIENT
  Sex: Female

DRUGS (1)
  1. ENBREL [Suspect]
     Indication: RHEUMATOID ARTHRITIS
     Route: 058
     Dates: start: 20100702, end: 20100705

REACTIONS (9)
  - ABASIA [None]
  - ASTHENIA [None]
  - LUNG CANCER METASTATIC [None]
  - MEMORY IMPAIRMENT [None]
  - METASTASES TO BONE [None]
  - METASTASES TO CENTRAL NERVOUS SYSTEM [None]
  - METASTASES TO KIDNEY [None]
  - METASTASES TO LIVER [None]
  - MUSCULOSKELETAL DISORDER [None]
